FAERS Safety Report 24084071 (Version 1)
Quarter: 2024Q3

REPORT INFORMATION
  Report Type: Spontaneous
  Country: US (occurrence: None)
  Receive Date: 20240711
  Receipt Date: 20240711
  Transmission Date: 20241017
  Serious: Yes (Disabling)
  Sender: Public
  Company Number: None

PATIENT
  Age: 78 Year
  Sex: Male
  Weight: 74.25 kg

DRUGS (29)
  1. OZEMPIC [Suspect]
     Active Substance: SEMAGLUTIDE
     Indication: Diabetes mellitus
  2. ATORVASTATIN [Concomitant]
  3. Certizine [Concomitant]
  4. Clorthalizone [Concomitant]
  5. Dicfenac [Concomitant]
  6. Empagliflozin (Jardience) [Concomitant]
  7. FINASTERIDE [Concomitant]
  8. Fluticasone Nasal [Concomitant]
  9. INSULIN GLARGINE [Concomitant]
     Active Substance: INSULIN GLARGINE
  10. Bromide Nasal [Concomitant]
  11. LISINOPRIL [Concomitant]
  12. METFORMIN [Concomitant]
  13. MIRTAZAPINE [Concomitant]
  14. MONTELUKAST [Concomitant]
  15. OMEPRAZOLE [Concomitant]
  16. PSEUDOEPHEDRINE HYDROCHLORIDE [Concomitant]
     Active Substance: PSEUDOEPHEDRINE HYDROCHLORIDE
  17. TAMSULOSIN [Concomitant]
  18. Aspirin [Concomitant]
  19. COENZYME Q10 [Concomitant]
     Active Substance: DIETARY SUPPLEMENT\UBIDECARENONE
  20. FISH OIL [Concomitant]
     Active Substance: FISH OIL
  21. omega 3 [Concomitant]
  22. hyluronic acid [Concomitant]
  23. glucosamine/chrondroitin [Concomitant]
  24. K2-calcium [Concomitant]
  25. multiVit/mineral [Concomitant]
  26. Milk Thistle stool softener [Concomitant]
  27. DOCUSATE SODIUM [Concomitant]
  28. Tryptophan powder [Concomitant]
  29. ZINC [Concomitant]
     Active Substance: ZINC

REACTIONS (3)
  - Optic ischaemic neuropathy [None]
  - Blindness [None]
  - Therapy cessation [None]

NARRATIVE: CASE EVENT DATE: 20230715
